FAERS Safety Report 19379126 (Version 3)
Quarter: 2021Q3

REPORT INFORMATION
  Report Type: Spontaneous
  Country: CA (occurrence: CA)
  Receive Date: 20210607
  Receipt Date: 20210705
  Transmission Date: 20211014
  Serious: Yes (Hospitalization, Other)
  Sender: FDA-Public Use
  Company Number: CA-CELLTRION INC.-2021CA001407

PATIENT

DRUGS (8)
  1. INFLECTRA [Suspect]
     Active Substance: INFLIXIMAB-DYYB
     Indication: COLITIS ULCERATIVE
     Dosage: 300 MG, EVERY (Q) 0 WEEK DOSE
     Route: 042
     Dates: start: 20210125, end: 20210125
  2. INFLECTRA [Suspect]
     Active Substance: INFLIXIMAB-DYYB
     Dosage: 300 MG, EVERY 8 WEEKS (EARLY DOSE)
     Route: 042
     Dates: start: 20210412, end: 20210412
  3. INFLECTRA [Suspect]
     Active Substance: INFLIXIMAB-DYYB
     Dosage: 300 MG, EVERY 8 WEEKS
     Route: 042
     Dates: start: 20210505, end: 20210505
  4. INFLECTRA [Suspect]
     Active Substance: INFLIXIMAB-DYYB
     Dosage: 300 MG, EVERY (Q) 2 WEEK DOSE
     Route: 042
     Dates: start: 20210208, end: 20210208
  5. INFLECTRA [Suspect]
     Active Substance: INFLIXIMAB-DYYB
     Dosage: 300 MG Q 6 WEEK DOSE
     Route: 042
     Dates: start: 20210309, end: 20210309
  6. MEZAVANT [Concomitant]
     Active Substance: MESALAMINE
     Dosage: 2.4G
     Dates: start: 2015
  7. PENTASA [Concomitant]
     Active Substance: MESALAMINE
     Dosage: UNK
  8. INFLECTRA [Suspect]
     Active Substance: INFLIXIMAB-DYYB
     Dosage: 300 MG, EVERY 8 WEEKS (RESCUE DOSE)
     Route: 042
     Dates: start: 20210521, end: 20210521

REACTIONS (17)
  - Off label use [Unknown]
  - Dry skin [Unknown]
  - Crohn^s disease [Not Recovered/Not Resolved]
  - Intestinal obstruction [Not Recovered/Not Resolved]
  - Blood pressure fluctuation [Unknown]
  - Heart rate decreased [Unknown]
  - Condition aggravated [Unknown]
  - Therapy non-responder [Unknown]
  - Rash papular [Unknown]
  - Drug level above therapeutic [Not Recovered/Not Resolved]
  - Therapeutic product effect delayed [Unknown]
  - Intentional product use issue [Unknown]
  - Weight decreased [Unknown]
  - Drug level decreased [Unknown]
  - Off label use [Unknown]
  - Pruritus [Unknown]
  - Blood pressure increased [Unknown]

NARRATIVE: CASE EVENT DATE: 2021
